FAERS Safety Report 8225126-6 (Version None)
Quarter: 2012Q1

REPORT INFORMATION
  Report Type: 
  Country: None (occurrence: None)
  Receive Date: 20120307
  Receipt Date: 20090904
  Transmission Date: 20120608
  Serious: No
  Sender: FDA-Public Use
  Company Number: PHEH2009US10835

PATIENT
  Sex: Female

DRUGS (6)
  1. AFINITOR [Suspect]
     Dosage: 10 MG
  2. ATENOLOL [Concomitant]
  3. LISINOPRIL [Concomitant]
  4. AMLODIPINE [Concomitant]
  5. CLONIDINE [Concomitant]
  6. HYDROCHLOROTHIAZIDE [Concomitant]

REACTIONS (2)
  - CHEST PAIN [None]
  - ANGINA PECTORIS [None]
